FAERS Safety Report 25075876 (Version 1)
Quarter: 2025Q1

REPORT INFORMATION
  Report Type: Spontaneous
  Country: RS (occurrence: RS)
  Receive Date: 20250313
  Receipt Date: 20250313
  Transmission Date: 20250408
  Serious: Yes (Hospitalization)
  Sender: ABBVIE
  Company Number: RS-JNJFOC-20250105567

PATIENT
  Age: 27 Year
  Sex: Male

DRUGS (12)
  1. CARIPRAZINE [Suspect]
     Active Substance: CARIPRAZINE
     Indication: Depression
     Route: 065
  2. LAMOTRIGINE [Suspect]
     Active Substance: LAMOTRIGINE
     Indication: Depression
     Route: 065
  3. CLOMIPRAMINE [Suspect]
     Active Substance: CLOMIPRAMINE
     Indication: Depression
     Route: 065
  4. SERTRALINE [Suspect]
     Active Substance: SERTRALINE HYDROCHLORIDE
     Indication: Depression
     Route: 065
  5. PREGABALIN [Suspect]
     Active Substance: PREGABALIN
     Indication: Depression
     Route: 065
  6. ARIPIPRAZOLE [Suspect]
     Active Substance: ARIPIPRAZOLE
     Indication: Depression
     Route: 065
  7. DULOXETINE [Suspect]
     Active Substance: DULOXETINE
     Indication: Depression
     Route: 065
  8. RISPERIDONE [Suspect]
     Active Substance: RISPERIDONE
     Indication: Depression
     Route: 065
  9. VENLAFAXINE [Suspect]
     Active Substance: VENLAFAXINE HYDROCHLORIDE
     Indication: Depression
     Route: 065
  10. MIRTAZAPINE [Suspect]
     Active Substance: MIRTAZAPINE
     Indication: Depression
     Route: 065
  11. OLANZAPINE [Suspect]
     Active Substance: OLANZAPINE
     Indication: Depression
     Route: 065
  12. CLOZAPINE [Suspect]
     Active Substance: CLOZAPINE
     Indication: Depression
     Route: 065

REACTIONS (4)
  - Abulia [Unknown]
  - Social avoidant behaviour [Unknown]
  - Loss of personal independence in daily activities [Unknown]
  - Depressed mood [Unknown]

NARRATIVE: CASE EVENT DATE: 20240101
